APPROVED DRUG PRODUCT: NIFEDIPINE
Active Ingredient: NIFEDIPINE
Strength: 90MG
Dosage Form/Route: TABLET, EXTENDED RELEASE;ORAL
Application: A210838 | Product #003
Applicant: SUN PHARMA INDUSTRIES LTD
Approved: Apr 16, 2019 | RLD: No | RS: No | Type: DISCN